FAERS Safety Report 7627951-9 (Version None)
Quarter: 2011Q3

REPORT INFORMATION
  Report Type: 
  Country: None (occurrence: None)
  Receive Date: 20110722
  Receipt Date: 20110719
  Transmission Date: 20111222
  Serious: Yes (Other)
  Sender: FDA-Public Use
  Company Number: US-BRISTOL-MYERS SQUIBB COMPANY-15911100

PATIENT
  Age: 13 Year
  Sex: Female
  Weight: 67 kg

DRUGS (4)
  1. ORENCIA [Suspect]
     Indication: JUVENILE ARTHRITIS
     Dosage: DURATION OF THERAPY:ABOUT A YEAR  NO OF INF:5
  2. NASACORT [Concomitant]
  3. ZYRTEC [Concomitant]
  4. PREVACID [Concomitant]

REACTIONS (1)
  - GALLBLADDER DISORDER [None]
